FAERS Safety Report 8353194-X (Version None)
Quarter: 2012Q2

REPORT INFORMATION
  Report Type: 
  Country: None (occurrence: None)
  Receive Date: 20120509
  Receipt Date: 20120423
  Transmission Date: 20120825
  Serious: Yes (Other)
  Sender: FDA-Public Use
  Company Number: NSR_00540_2012

PATIENT
  Sex: Male

DRUGS (7)
  1. LAMICTAL [Suspect]
     Indication: CONVULSION
     Dosage: (DF ORAL)
     Route: 048
  2. TEMAZEPAM [Concomitant]
  3. MULTI-VITAMINS [Concomitant]
  4. LAMOTRIGINE [Concomitant]
  5. GLUCOSAMINE [Concomitant]
  6. ZINC SALT [Concomitant]
  7. LAMOTRIGINE [Suspect]
     Indication: CONVULSION
     Dosage: (300 MG QD)
     Dates: start: 20120101

REACTIONS (4)
  - HEADACHE [None]
  - PRODUCT SUBSTITUTION ISSUE [None]
  - CONVULSION [None]
  - STARING [None]
